FAERS Safety Report 7375233-5 (Version None)
Quarter: 2011Q1

REPORT INFORMATION
  Report Type: 
  Country: None (occurrence: None)
  Receive Date: 20110325
  Receipt Date: 20110314
  Transmission Date: 20110831
  Serious: Yes (Hospitalization, Other)
  Sender: FDA-Public Use
  Company Number: US-ELI_LILLY_AND_COMPANY-US201005007057

PATIENT
  Sex: Female

DRUGS (16)
  1. LEVOTHYROXINE SODIUM [Concomitant]
     Dosage: 0.088 UG, DAILY (1/D)
  2. BUSPIRONE HCL [Concomitant]
     Dosage: 15 MG, 2/D
  3. AGGRENOX [Concomitant]
     Dosage: 200MG/25MG, 2/D
  4. FORTEO [Suspect]
     Indication: OSTEOPOROSIS
     Dosage: 20 UG, UNKNOWN
     Route: 058
     Dates: start: 20091201
  5. LOVASTATIN [Concomitant]
     Dosage: 40 MG, DAILY (1/D)
  6. TRICOR [Concomitant]
     Dosage: 145 MG, DAILY (1/D)
  7. CYCLOBENZAPRINE [Concomitant]
     Indication: HEADACHE
     Dosage: 5 MG, UNK
  8. LISINOPRIL [Concomitant]
     Dosage: 10 MG, DAILY (1/D)
  9. BUMETANIDE [Concomitant]
     Dosage: 2 MG, DAILY (1/D)
  10. CALCIUM [Concomitant]
     Dosage: 600 MG, DAILY (1/D)
  11. MULTI-VITAMIN [Concomitant]
     Dosage: UNK, DAILY (1/D)
  12. GABAPENTIN [Concomitant]
     Dosage: 600 MG, EACH EVENING
  13. VITAMINS NOS [Concomitant]
     Dosage: 50000 MG, WEEKLY (1/W)
  14. FORTEO [Suspect]
     Dosage: 20 UG, DAILY (1/D)
     Route: 058
  15. VITAMIN D [Concomitant]
     Dosage: 400 IU, WEEKLY (1/W)
  16. CLONAZEPAM [Concomitant]
     Dosage: 2 MG, EACH EVENING

REACTIONS (8)
  - PYREXIA [None]
  - FEELING ABNORMAL [None]
  - CYSTITIS [None]
  - KIDNEY INFECTION [None]
  - TREMOR [None]
  - DIARRHOEA [None]
  - CHILLS [None]
  - HYPERHIDROSIS [None]
